FAERS Safety Report 10432879 (Version 1)
Quarter: 2014Q3

REPORT INFORMATION
  Report Type: Spontaneous
  Country: US (occurrence: None)
  Receive Date: 20140904
  Receipt Date: 20140904
  Transmission Date: 20150326
  Serious: No
  Sender: FDA-Public Use
  Company Number: None

PATIENT
  Age: 59 Year
  Sex: Female
  Weight: 50.35 kg

DRUGS (1)
  1. XELODA [Suspect]
     Active Substance: CAPECITABINE
     Indication: BREAST CANCER FEMALE
     Dosage: L 047 500 MG ORAL BID
     Route: 048
     Dates: start: 20140816

REACTIONS (2)
  - Increased appetite [None]
  - Hunger [None]

NARRATIVE: CASE EVENT DATE: 20140816
